FAERS Safety Report 18323582 (Version 1)
Quarter: 2020Q3

REPORT INFORMATION
  Report Type: Report from Study
  Country: CA (occurrence: CA)
  Receive Date: 20200928
  Receipt Date: 20200928
  Transmission Date: 20201103
  Serious: Yes (Other)
  Sender: FDA-Public Use
  Company Number: CA-JNJFOC-20200931912

PATIENT
  Age: 20 Year
  Sex: Male
  Weight: 78 kg

DRUGS (1)
  1. REMICADE [Suspect]
     Active Substance: INFLIXIMAB
     Indication: COLITIS ULCERATIVE
     Dosage: 16?SEP?2020: STARTED AT RATE AT 100CC/HR. RESTARTED SLOWLY 1 HOUR LATER AND COMPLETED
     Route: 042

REACTIONS (6)
  - Ocular hyperaemia [Recovering/Resolving]
  - Urticaria [Recovering/Resolving]
  - Discomfort [Recovering/Resolving]
  - Infusion related reaction [Recovering/Resolving]
  - Pruritus [Recovering/Resolving]
  - Eye swelling [Recovering/Resolving]

NARRATIVE: CASE EVENT DATE: 20200916
